FAERS Safety Report 9168109 (Version 3)
Quarter: 2013Q2

REPORT INFORMATION
  Report Type: Spontaneous
  Country: MX (occurrence: None)
  Receive Date: 20130307
  Receipt Date: 20130424
  Transmission Date: 20140414
  Serious: Yes (Hospitalization, Other)
  Sender: FDA-Public Use
  Company Number: 2013S1000643

PATIENT
  Age: 67 Year
  Sex: Female

DRUGS (2)
  1. PITAVASTATIN [Suspect]
     Route: 048
     Dates: start: 201102
  2. TAMSULOSIN [Suspect]
     Indication: NEUROGENIC BLADDER

REACTIONS (4)
  - Diarrhoea [None]
  - Syncope [None]
  - Hypotension [None]
  - Hypertensive crisis [None]
